FAERS Safety Report 16700330 (Version 2)
Quarter: 2019Q3

REPORT INFORMATION
  Report Type: Spontaneous
  Country: PL (occurrence: PL)
  Receive Date: 20190814
  Receipt Date: 20190821
  Transmission Date: 20191004
  Serious: Yes (Hospitalization, Other)
  Sender: FDA-Public Use
  Company Number: PL-UCBSA-2019033669

PATIENT
  Age: 8 Year
  Sex: Male

DRUGS (9)
  1. LEVETIRACETAM. [Suspect]
     Active Substance: LEVETIRACETAM
     Indication: FRONTAL LOBE EPILEPSY
     Dosage: USED DURING THE ADMISSION BEFORE LIDOCAINE INFUSION
  2. TOPIRAMATE. [Suspect]
     Active Substance: TOPIRAMATE
     Indication: FRONTAL LOBE EPILEPSY
     Dosage: USED DURING THE ADMISSION BEFORE LIDOCAINE INFUSION
  3. LACOSAMIDE. [Suspect]
     Active Substance: LACOSAMIDE
     Indication: FRONTAL LOBE EPILEPSY
     Dosage: UNKNOWN DOSE
  4. CLONAZEPAM. [Suspect]
     Active Substance: CLONAZEPAM
     Indication: FRONTAL LOBE EPILEPSY
     Dosage: USED DURING THE ADMISSION BEFORE LIDOCAINE INFUSION
     Route: 042
  5. VALPROIC ACID. [Suspect]
     Active Substance: VALPROIC ACID
     Indication: FRONTAL LOBE EPILEPSY
     Dosage: USED DURING THE ADMISSION BEFORE LIDOCAINE INFUSION
     Route: 042
  6. ACETAZOLAMIDE. [Concomitant]
     Active Substance: ACETAZOLAMIDE
     Indication: FRONTAL LOBE EPILEPSY
     Dosage: USED SIMULTANEOUSLY WITH LIDOCAINE INFUSION
  7. DIAZEPAM. [Suspect]
     Active Substance: DIAZEPAM
     Indication: FRONTAL LOBE EPILEPSY
     Dosage: UNKNOWN DOSE
     Route: 042
  8. CARBAMAZEPINE. [Concomitant]
     Active Substance: CARBAMAZEPINE
     Indication: FRONTAL LOBE EPILEPSY
     Dosage: SIMULTANEOUSLY WITH LIDOCAINE INFUSION
     Route: 048
  9. PHENYTOIN. [Concomitant]
     Active Substance: PHENYTOIN
     Indication: FRONTAL LOBE EPILEPSY
     Dosage: SIMULTANEOUSLY WITH LIDOCAINE INFUSION

REACTIONS (2)
  - Multiple-drug resistance [Unknown]
  - Epilepsy [Recovering/Resolving]
